FAERS Safety Report 4630662-5 (Version None)
Quarter: 2005Q2

REPORT INFORMATION
  Report Type: 
  Country: None (occurrence: None)
  Receive Date: 20050406
  Receipt Date: 20050307
  Transmission Date: 20051028
  Serious: No
  Sender: FDA-Public Use
  Company Number: 2005-BP-03753BP

PATIENT

DRUGS (1)
  1. MIRAPEX [Suspect]
     Dosage: NR (NR), PO
     Route: 048

REACTIONS (2)
  - COMA [None]
  - MENTAL IMPAIRMENT [None]
